FAERS Safety Report 8863336 (Version 1)
Quarter: 2012Q4

REPORT INFORMATION
  Report Type: 
  Country: US (occurrence: US)
  Receive Date: 20121025
  Receipt Date: 20121025
  Transmission Date: 20130627
  Serious: Yes (Hospitalization)
  Sender: FDA-Public Use
  Company Number: US-GLAXOSMITHKLINE-A0875291A

PATIENT
  Age: 49 Year
  Sex: Male
  Weight: 118.8 kg

DRUGS (1)
  1. AVANDIA [Suspect]
     Indication: DIABETES MELLITUS
     Route: 048
     Dates: end: 20080504

REACTIONS (2)
  - Myocardial infarction [Recovered/Resolved]
  - Eye disorder [Unknown]
